FAERS Safety Report 25236256 (Version 3)
Quarter: 2025Q2

REPORT INFORMATION
  Report Type: Spontaneous
  Country: GB (occurrence: GB)
  Receive Date: 20250424
  Receipt Date: 20250521
  Transmission Date: 20250716
  Serious: Yes (Death, Hospitalization, Other)
  Sender: PFIZER
  Company Number: GB-BAXTER-2025BAX014265

PATIENT
  Age: 2 Year
  Sex: Male
  Weight: 14 kg

DRUGS (62)
  1. MYLOTARG [Suspect]
     Active Substance: GEMTUZUMAB OZOGAMICIN
     Indication: Acute myeloid leukaemia
     Route: 042
     Dates: start: 20250214
  2. MYLOTARG [Suspect]
     Active Substance: GEMTUZUMAB OZOGAMICIN
     Route: 042
     Dates: start: 20250217
  3. CYTARABINE [Suspect]
     Active Substance: CYTARABINE
     Indication: Acute myeloid leukaemia
     Dosage: 64 MG, (100MG/M2), SLOW BOLUS, DOSE IN A SYRINGE. TO BE ADMINISTERED STRICTLY EVERY 12HOURS
     Route: 040
     Dates: start: 20250211
  4. CYTARABINE [Suspect]
     Active Substance: CYTARABINE
     Dosage: 64 MG, (100MG/M2), SLOW BOLUS, DOSE IN A SYRINGE. TO BE ADMINISTERED STRICTLY EVERY 12HOURS
     Route: 040
     Dates: start: 20250211
  5. CYTARABINE [Suspect]
     Active Substance: CYTARABINE
     Route: 037
     Dates: start: 20250211
  6. CYTARABINE [Suspect]
     Active Substance: CYTARABINE
     Dosage: 64 MG, (100MG/M2), SLOW BOLUS, DOSE IN A SYRINGE. TO BE ADMINISTERED STRICTLY EVERY 12HOURS
     Route: 040
     Dates: start: 20250212
  7. CYTARABINE [Suspect]
     Active Substance: CYTARABINE
     Dosage: 64 MG, (100MG/M2), SLOW BOLUS, DOSE IN A SYRINGE. TO BE ADMINISTERED STRICTLY EVERY 12HOURS
     Route: 040
     Dates: start: 20250212
  8. CYTARABINE [Suspect]
     Active Substance: CYTARABINE
     Dosage: 64 MG, (100MG/M2), SLOW BOLUS, DOSE IN A SYRINGE. TO BE ADMINISTERED STRICTLY EVERY 12HOURS
     Route: 040
     Dates: start: 20250213
  9. CYTARABINE [Suspect]
     Active Substance: CYTARABINE
     Dosage: 64 MG, (100MG/M2), SLOW BOLUS, DOSE IN A SYRINGE. TO BE ADMINISTERED STRICTLY EVERY 12HOURS
     Route: 040
     Dates: start: 20250213
  10. CYTARABINE [Suspect]
     Active Substance: CYTARABINE
     Dosage: 64 MG, (100MG/M2), SLOW BOLUS, DOSE IN A SYRINGE. TO BE ADMINISTERED STRICTLY EVERY 12HOURS
     Route: 040
     Dates: start: 20250214
  11. CYTARABINE [Suspect]
     Active Substance: CYTARABINE
     Dosage: 64 MG, (100MG/M2), SLOW BOLUS, DOSE IN A SYRINGE. TO BE ADMINISTERED STRICTLY EVERY 12HOURS
     Route: 040
     Dates: start: 20250214
  12. CYTARABINE [Suspect]
     Active Substance: CYTARABINE
     Route: 037
     Dates: start: 20250214
  13. CYTARABINE [Suspect]
     Active Substance: CYTARABINE
     Dosage: 64 MG, (100MG/M2), SLOW BOLUS, DOSE IN A SYRINGE. TO BE ADMINISTERED STRICTLY EVERY 12HOURS
     Route: 040
     Dates: start: 20250215
  14. CYTARABINE [Suspect]
     Active Substance: CYTARABINE
     Dosage: 64 MG, (100MG/M2), SLOW BOLUS, DOSE IN A SYRINGE. TO BE ADMINISTERED STRICTLY EVERY 12HOURS
     Route: 040
     Dates: start: 20250215
  15. CYTARABINE [Suspect]
     Active Substance: CYTARABINE
     Dosage: 64 MG, (100MG/M2), SLOW BOLUS, DOSE IN A SYRINGE. TO BE ADMINISTERED STRICTLY EVERY 12HOURS
     Route: 040
     Dates: start: 20250216
  16. CYTARABINE [Suspect]
     Active Substance: CYTARABINE
     Dosage: 64 MG, (100MG/M2), SLOW BOLUS, DOSE IN A SYRINGE. TO BE ADMINISTERED STRICTLY EVERY 12HOURS
     Route: 040
     Dates: start: 20250216
  17. CYTARABINE [Suspect]
     Active Substance: CYTARABINE
     Dosage: 64 MG, (100MG/M2), SLOW BOLUS, DOSE IN A SYRINGE. TO BE ADMINISTERED STRICTLY EVERY 12HOURS
     Route: 040
     Dates: start: 20250217
  18. CYTARABINE [Suspect]
     Active Substance: CYTARABINE
     Dosage: 64 MG, (100MG/M2), SLOW BOLUS, DOSE IN A SYRINGE. TO BE ADMINISTERED STRICTLY EVERY 12HOURS
     Route: 040
     Dates: start: 20250217
  19. CYTARABINE [Suspect]
     Active Substance: CYTARABINE
     Route: 037
     Dates: start: 20250217
  20. CYTARABINE [Suspect]
     Active Substance: CYTARABINE
     Dosage: 64 MG, (100MG/M2), SLOW BOLUS, DOSE IN A SYRINGE. TO BE ADMINISTERED STRICTLY EVERY 12HOURS
     Route: 040
     Dates: start: 20250218
  21. CYTARABINE [Suspect]
     Active Substance: CYTARABINE
     Dosage: 64 MG, (100MG/M2), SLOW BOLUS, DOSE IN A SYRINGE. TO BE ADMINISTERED STRICTLY EVERY 12HOURS
     Route: 040
     Dates: start: 20250218
  22. CYTARABINE [Suspect]
     Active Substance: CYTARABINE
     Dosage: 64 MG, (100MG/M2), SLOW BOLUS, DOSE IN A SYRINGE. TO BE ADMINISTERED STRICTLY EVERY 12HOURS
     Route: 040
     Dates: start: 20250219
  23. CYTARABINE [Suspect]
     Active Substance: CYTARABINE
     Dosage: 64 MG, (100MG/M2), SLOW BOLUS, DOSE IN A SYRINGE. TO BE ADMINISTERED STRICTLY EVERY 12HOURS
     Route: 040
     Dates: start: 20250219
  24. CYTARABINE [Suspect]
     Active Substance: CYTARABINE
     Route: 037
     Dates: start: 20250219
  25. CYTARABINE [Suspect]
     Active Substance: CYTARABINE
     Dosage: 64 MG, (100MG/M2), SLOW BOLUS, DOSE IN A SYRINGE. TO BE ADMINISTERED STRICTLY EVERY 12HOURS
     Route: 040
     Dates: start: 20250220
  26. CYTARABINE [Suspect]
     Active Substance: CYTARABINE
     Dosage: 64 MG, (100MG/M2), SLOW BOLUS, DOSE IN A SYRINGE. TO BE ADMINISTERED STRICTLY EVERY 12HOURS
     Route: 040
     Dates: start: 20250220
  27. CYTARABINE [Suspect]
     Active Substance: CYTARABINE
     Route: 037
     Dates: start: 20250224
  28. CYTARABINE [Suspect]
     Active Substance: CYTARABINE
     Route: 037
     Dates: start: 20250226
  29. HYDROCORTISONE SODIUM SUCCINATE [Suspect]
     Active Substance: HYDROCORTISONE SODIUM SUCCINATE
     Indication: Acute myeloid leukaemia
     Route: 037
     Dates: start: 20250211
  30. HYDROCORTISONE SODIUM SUCCINATE [Suspect]
     Active Substance: HYDROCORTISONE SODIUM SUCCINATE
     Route: 037
     Dates: start: 20250214
  31. HYDROCORTISONE SODIUM SUCCINATE [Suspect]
     Active Substance: HYDROCORTISONE SODIUM SUCCINATE
     Route: 037
     Dates: start: 20250217
  32. HYDROCORTISONE SODIUM SUCCINATE [Suspect]
     Active Substance: HYDROCORTISONE SODIUM SUCCINATE
     Route: 037
     Dates: start: 20250219
  33. HYDROCORTISONE SODIUM SUCCINATE [Suspect]
     Active Substance: HYDROCORTISONE SODIUM SUCCINATE
     Route: 037
     Dates: start: 20250224
  34. HYDROCORTISONE SODIUM SUCCINATE [Suspect]
     Active Substance: HYDROCORTISONE SODIUM SUCCINATE
     Route: 037
     Dates: start: 20250226
  35. METHOTREXATE SODIUM [Suspect]
     Active Substance: METHOTREXATE SODIUM
     Indication: Acute myeloid leukaemia
     Route: 037
     Dates: start: 20250211
  36. METHOTREXATE SODIUM [Suspect]
     Active Substance: METHOTREXATE SODIUM
     Route: 037
     Dates: start: 20250214
  37. METHOTREXATE SODIUM [Suspect]
     Active Substance: METHOTREXATE SODIUM
     Route: 037
     Dates: start: 20250217
  38. METHOTREXATE SODIUM [Suspect]
     Active Substance: METHOTREXATE SODIUM
     Route: 037
     Dates: start: 20250219
  39. METHOTREXATE SODIUM [Suspect]
     Active Substance: METHOTREXATE SODIUM
     Route: 037
     Dates: start: 20250224
  40. METHOTREXATE SODIUM [Suspect]
     Active Substance: METHOTREXATE SODIUM
     Route: 037
     Dates: start: 20250226
  41. CALCIUM CHLORIDE\POTASSIUM CHLORIDE\SODIUM CHLORIDE\SODIUM LACTATE [Suspect]
     Active Substance: CALCIUM CHLORIDE\POTASSIUM CHLORIDE\SODIUM CHLORIDE\SODIUM LACTATE
     Indication: Acute myeloid leukaemia
     Route: 042
     Dates: start: 20250211
  42. CALCIUM CHLORIDE\POTASSIUM CHLORIDE\SODIUM CHLORIDE\SODIUM LACTATE [Suspect]
     Active Substance: CALCIUM CHLORIDE\POTASSIUM CHLORIDE\SODIUM CHLORIDE\SODIUM LACTATE
     Route: 042
     Dates: start: 20250212
  43. CALCIUM CHLORIDE\POTASSIUM CHLORIDE\SODIUM CHLORIDE\SODIUM LACTATE [Suspect]
     Active Substance: CALCIUM CHLORIDE\POTASSIUM CHLORIDE\SODIUM CHLORIDE\SODIUM LACTATE
     Route: 042
     Dates: start: 20250213
  44. CALCIUM CHLORIDE\POTASSIUM CHLORIDE\SODIUM CHLORIDE\SODIUM LACTATE [Suspect]
     Active Substance: CALCIUM CHLORIDE\POTASSIUM CHLORIDE\SODIUM CHLORIDE\SODIUM LACTATE
     Route: 042
     Dates: start: 20250214
  45. MITOXANTRONE [Suspect]
     Active Substance: MITOXANTRONE HYDROCHLORIDE
     Indication: Acute myeloid leukaemia
     Route: 042
     Dates: start: 20250211
  46. MITOXANTRONE [Suspect]
     Active Substance: MITOXANTRONE HYDROCHLORIDE
     Route: 042
     Dates: start: 20250212
  47. MITOXANTRONE [Suspect]
     Active Substance: MITOXANTRONE HYDROCHLORIDE
     Route: 042
     Dates: start: 20250213
  48. MITOXANTRONE [Suspect]
     Active Substance: MITOXANTRONE HYDROCHLORIDE
     Route: 042
     Dates: start: 20250214
  49. DEXRAZOXANE [Suspect]
     Active Substance: DEXRAZOXANE
     Indication: Acute myeloid leukaemia
     Route: 042
     Dates: start: 20250211
  50. DEXRAZOXANE [Suspect]
     Active Substance: DEXRAZOXANE
     Route: 042
     Dates: start: 20250212
  51. DEXRAZOXANE [Suspect]
     Active Substance: DEXRAZOXANE
     Route: 042
     Dates: start: 20250213
  52. DEXRAZOXANE [Suspect]
     Active Substance: DEXRAZOXANE
     Route: 042
     Dates: start: 20250214
  53. SODIUM CHLORIDE [Suspect]
     Active Substance: SODIUM CHLORIDE
     Indication: Medication dilution
     Route: 042
     Dates: start: 20250211
  54. SODIUM CHLORIDE [Suspect]
     Active Substance: SODIUM CHLORIDE
     Route: 042
     Dates: start: 20250212
  55. SODIUM CHLORIDE [Suspect]
     Active Substance: SODIUM CHLORIDE
     Route: 042
     Dates: start: 20250213
  56. SODIUM CHLORIDE [Suspect]
     Active Substance: SODIUM CHLORIDE
     Route: 042
     Dates: start: 20250214
  57. SODIUM CHLORIDE [Suspect]
     Active Substance: SODIUM CHLORIDE
     Route: 042
     Dates: start: 20250214
  58. SODIUM CHLORIDE [Suspect]
     Active Substance: SODIUM CHLORIDE
     Route: 042
     Dates: start: 20250217
  59. AMBISOME [Suspect]
     Active Substance: AMPHOTERICIN B
     Indication: Prophylaxis
     Route: 065
  60. AMBISOME [Suspect]
     Active Substance: AMPHOTERICIN B
     Indication: Antifungal treatment
  61. COTRIMOXAZOLE [Suspect]
     Active Substance: SULFAMETHOXAZOLE\TRIMETHOPRIM
     Dosage: UNK, 2X/WEEK (EVERY SATURDAY AND SUNDAY)
     Route: 065
  62. FUROSEMIDE [Suspect]
     Active Substance: FUROSEMIDE
     Route: 065
     Dates: start: 202502

REACTIONS (12)
  - Venoocclusive disease [Fatal]
  - Multiple organ dysfunction syndrome [Fatal]
  - Leukaemia [Unknown]
  - Haematemesis [Unknown]
  - Abdominal distension [Unknown]
  - Blood beta-D-glucan increased [Unknown]
  - Hepatic function abnormal [Not Recovered/Not Resolved]
  - Abdominal tenderness [Unknown]
  - Mucosal inflammation [Unknown]
  - Weight increased [Unknown]
  - Off label use [Unknown]
  - Off label use [Unknown]

NARRATIVE: CASE EVENT DATE: 20250211
